FAERS Safety Report 14975479 (Version 1)
Quarter: 2018Q2

REPORT INFORMATION
  Report Type: Spontaneous
  Country: US (occurrence: US)
  Receive Date: 20180605
  Receipt Date: 20180605
  Transmission Date: 20180711
  Serious: No
  Sender: FDA-Public Use
  Company Number: US-TARO-2018TAR00143

PATIENT
  Sex: Male

DRUGS (1)
  1. CLORAZEPATE DIPOTASSIUM TABLETS USP 15 MG [Suspect]
     Active Substance: CLORAZEPATE DIPOTASSIUM
     Dosage: UNK

REACTIONS (1)
  - Hypermagnesaemia [Not Recovered/Not Resolved]
